FAERS Safety Report 16265173 (Version 2)
Quarter: 2019Q2

REPORT INFORMATION
  Report Type: Spontaneous
  Country: FR (occurrence: FR)
  Receive Date: 20190502
  Receipt Date: 20190610
  Transmission Date: 20190711
  Serious: Yes (Other)
  Sender: FDA-Public Use
  Company Number: FR-BIOVITRUM-2019FR0914

PATIENT
  Age: 11 Year
  Sex: Male

DRUGS (2)
  1. AINS [Concomitant]
  2. KINERET [Suspect]
     Active Substance: ANAKINRA
     Dates: start: 20190321

REACTIONS (1)
  - Hepatocellular injury [Recovered/Resolved]

NARRATIVE: CASE EVENT DATE: 20190331
